FAERS Safety Report 6277032-4 (Version None)
Quarter: 2009Q3

REPORT INFORMATION
  Report Type: 
  Country: None (occurrence: None)
  Receive Date: 20090722
  Receipt Date: 20081201
  Transmission Date: 20100115
  Serious: No
  Sender: FDA-Public Use
  Company Number: US-BRISTOL-MYERS SQUIBB COMPANY-14423966

PATIENT
  Age: 77 Year
  Sex: Male
  Weight: 68 kg

DRUGS (6)
  1. COUMADIN [Suspect]
     Indication: CARDIAC PACEMAKER INSERTION
     Dosage: DURATION:8-10YEARS
  2. ACIPHEX [Concomitant]
  3. XALATAN [Concomitant]
     Route: 047
  4. VITAMIN B-12 [Concomitant]
     Route: 060
  5. FOLIC ACID [Concomitant]
  6. OMEPRAZOLE [Concomitant]

REACTIONS (5)
  - BALANCE DISORDER [None]
  - CONFUSIONAL STATE [None]
  - HALLUCINATION [None]
  - MEMORY IMPAIRMENT [None]
  - VISUAL IMPAIRMENT [None]
